FAERS Safety Report 11092848 (Version 1)
Quarter: 2015Q2

REPORT INFORMATION
  Report Type: Spontaneous
  Country: CA (occurrence: None)
  Receive Date: 20150504
  Receipt Date: 20150504
  Transmission Date: 20150821
  Serious: Yes (Other)
  Sender: FDA-Public Use
  Company Number: 2015SA052218

PATIENT
  Age: 30 Year
  Sex: Female

DRUGS (5)
  1. SULFASALAZINE (SULFASALAZINE) [Suspect]
     Active Substance: SULFASALAZINE
  2. CYMBALTA [Suspect]
     Active Substance: DULOXETINE HYDROCHLORIDE
     Indication: PAIN
  3. PREDNISONE (PREDNISONE) [Suspect]
     Active Substance: PREDNISONE
  4. PLAQUENIL [Suspect]
     Active Substance: HYDROXYCHLOROQUINE SULFATE
  5. RITUXAN [Suspect]
     Active Substance: RITUXIMAB
     Indication: DERMATOMYOSITIS
     Dosage: IV NOS
     Route: 042
     Dates: start: 20130529

REACTIONS (6)
  - Dermatomyositis [None]
  - Pain [None]
  - Movement disorder [None]
  - Abasia [None]
  - Weight increased [None]
  - Nausea [None]
